FAERS Safety Report 8157407-9 (Version None)
Quarter: 2012Q1

REPORT INFORMATION
  Report Type: 
  Country: None (occurrence: None)
  Receive Date: 20120222
  Receipt Date: 20120216
  Transmission Date: 20120608
  Serious: Yes (Other)
  Sender: FDA-Public Use
  Company Number: US-PFIZER INC-2012043350

PATIENT
  Sex: Female
  Weight: 72.562 kg

DRUGS (11)
  1. NEURONTIN [Suspect]
     Indication: PAIN IN EXTREMITY
  2. NEURONTIN [Suspect]
     Indication: NECK PAIN
  3. ZESTRIL [Concomitant]
     Indication: HYPERTENSION
     Dosage: 40 MG, DAILY
  4. NEURONTIN [Suspect]
     Indication: BACK PAIN
  5. ACETYLSALICYLIC ACID [Concomitant]
     Dosage: 500 MG, AS NEEDED
  6. NEURONTIN [Suspect]
     Indication: SKIN LESION
     Dosage: 900 MG, 3X/DAY
     Dates: start: 20110101, end: 20120215
  7. VITAMIN D [Concomitant]
     Dosage: 5000 IU, DAILY
  8. BENADRYL [Concomitant]
     Indication: HYPERSENSITIVITY
     Dosage: UNK, AS NEEDED
  9. ACETYLSALICYLIC ACID [Concomitant]
     Indication: CARDIAC DISORDER
     Dosage: 81 MG, DAILY
  10. ZOCOR [Concomitant]
     Indication: BLOOD CHOLESTEROL INCREASED
     Dosage: 10 MG, DAILY
  11. CELEXA [Concomitant]
     Indication: DEPRESSION
     Dosage: 40 MG, DAILY

REACTIONS (2)
  - PAIN IN EXTREMITY [None]
  - DRUG INEFFECTIVE [None]
